FAERS Safety Report 25231241 (Version 1)
Quarter: 2025Q2

REPORT INFORMATION
  Report Type: Spontaneous
  Country: US (occurrence: US)
  Receive Date: 20250423
  Receipt Date: 20250423
  Transmission Date: 20250716
  Serious: No
  Sender: TAIHO ONCOLOGY INC
  Company Number: US-TAIHOP-2025-004173

PATIENT
  Age: 41 Year
  Sex: Male
  Weight: 75.3 kg

DRUGS (6)
  1. LONSURF [Suspect]
     Active Substance: TIPIRACIL HYDROCHLORIDE\TRIFLURIDINE
     Indication: Rectal cancer
     Route: 048
     Dates: start: 202412, end: 20250304
  2. FRUZAQLA [Suspect]
     Active Substance: FRUQUINTINIB
     Indication: Rectal cancer
     Dosage: FOR 3 WEEKS AND THEN 1 WEEK OFF
     Route: 048
     Dates: start: 20250310
  3. DOXYCYCLINE HYCLATE [Concomitant]
     Active Substance: DOXYCYCLINE HYCLATE
     Indication: Product used for unknown indication
  4. FLUCONAZOLE [Concomitant]
     Active Substance: FLUCONAZOLE
     Indication: Product used for unknown indication
  5. LEVOTHYROXINE [Concomitant]
     Active Substance: LEVOTHYROXINE
     Indication: Product used for unknown indication
  6. PROCHLORPERAZINE MALEATE [Concomitant]
     Active Substance: PROCHLORPERAZINE MALEATE
     Indication: Product used for unknown indication

REACTIONS (4)
  - Neuropathy peripheral [Unknown]
  - Anorectal discomfort [Unknown]
  - Dyspepsia [Unknown]
  - Taste disorder [Unknown]
